FAERS Safety Report 12215312 (Version 3)
Quarter: 2016Q2

REPORT INFORMATION
  Report Type: Spontaneous
  Country: US (occurrence: US)
  Receive Date: 20160328
  Receipt Date: 20160524
  Transmission Date: 20160815
  Serious: Yes (Other)
  Sender: FDA-Public Use
  Company Number: US-PFIZER INC-2016167700

PATIENT
  Sex: Male

DRUGS (1)
  1. LIPITOR [Suspect]
     Active Substance: ATORVASTATIN CALCIUM
     Dosage: UNK
     Dates: end: 2007

REACTIONS (4)
  - Myalgia [Unknown]
  - Abasia [Unknown]
  - Drug hypersensitivity [Unknown]
  - Nausea [Unknown]

NARRATIVE: CASE EVENT DATE: 200711
